FAERS Safety Report 8949834 (Version 1)
Quarter: 2012Q4

REPORT INFORMATION
  Report Type: 
  Country: GB (occurrence: GB)
  Receive Date: 20121206
  Receipt Date: 20121206
  Transmission Date: 20130627
  Serious: Yes (Death, Other)
  Sender: FDA-Public Use
  Company Number: GB-ROCHE-1164317

PATIENT
  Age: 23 Year
  Sex: Male

DRUGS (1)
  1. ROACCUTANE [Suspect]
     Indication: ACNE
     Route: 048
     Dates: start: 2000, end: 2003

REACTIONS (9)
  - Anxiety [Fatal]
  - Hallucination, auditory [Unknown]
  - Delusion [Unknown]
  - Depression [Fatal]
  - Mood altered [Fatal]
  - Paranoia [Unknown]
  - Psychotic disorder [Fatal]
  - Completed suicide [Fatal]
  - Social avoidant behaviour [Unknown]
